FAERS Safety Report 8914495 (Version 4)
Quarter: 2014Q2

REPORT INFORMATION
  Report Type: Spontaneous
  Country: US (occurrence: US)
  Receive Date: 20121116
  Receipt Date: 20140513
  Transmission Date: 20141212
  Serious: No
  Sender: FDA-Public Use
  Company Number: US-009507513-1211USA003022

PATIENT
  Sex: Male

DRUGS (2)
  1. PROPECIA [Suspect]
     Indication: ANDROGENETIC ALOPECIA
     Dosage: 1 MG, UNK
     Route: 048
     Dates: start: 20100625, end: 20110606
  2. FINASTERIDE [Suspect]
     Indication: ANDROGENETIC ALOPECIA
     Dosage: 5 MG, UNK
     Route: 048
     Dates: start: 20070612, end: 20070909

REACTIONS (9)
  - Cognitive disorder [Not Recovered/Not Resolved]
  - Testicular failure [Unknown]
  - Anxiety [Unknown]
  - Male orgasmic disorder [Unknown]
  - Sexual dysfunction [Not Recovered/Not Resolved]
  - Semen volume decreased [Unknown]
  - Testicular pain [Unknown]
  - Loss of libido [Unknown]
  - Depression [Unknown]
